FAERS Safety Report 25311728 (Version 1)
Quarter: 2025Q2

REPORT INFORMATION
  Report Type: Spontaneous
  Country: US (occurrence: US)
  Receive Date: 20250514
  Receipt Date: 20250514
  Transmission Date: 20250717
  Serious: Yes (Other)
  Sender: COOPERSURGICAL
  Company Number: US-COOPERSURGICAL, INC.-2025CPS003808

PATIENT
  Sex: Male

DRUGS (1)
  1. PARAGARD T 380A [Suspect]
     Active Substance: COPPER

REACTIONS (4)
  - Premature baby [Unknown]
  - Resuscitation [Recovered/Resolved]
  - Foetal exposure during pregnancy [Unknown]
  - Neonatal disorder [Unknown]

NARRATIVE: CASE EVENT DATE: 20200101
